FAERS Safety Report 11321456 (Version 4)
Quarter: 2019Q1

REPORT INFORMATION
  Report Type: Spontaneous
  Country: US (occurrence: US)
  Receive Date: 20150729
  Receipt Date: 20190325
  Transmission Date: 20190417
  Serious: Yes (Other)
  Sender: FDA-Public Use
  Company Number: US-PFIZER INC-2015247127

PATIENT
  Age: 28 Year
  Sex: Male
  Weight: 82 kg

DRUGS (1)
  1. BENEFIX [Suspect]
     Active Substance: COAGULATION FACTOR IX RECOMBINANT HUMAN\ISOPROPYL ALCOHOL
     Indication: FACTOR IX DEFICIENCY
     Dosage: UNK, (8200IU +/- 10 % # OF DOSAGE: 3)
     Dates: start: 20150721

REACTIONS (1)
  - Haemorrhage [Not Recovered/Not Resolved]
